FAERS Safety Report 6701132-5 (Version None)
Quarter: 2010Q2

REPORT INFORMATION
  Report Type: 
  Country: None (occurrence: None)
  Receive Date: 20100428
  Receipt Date: 20100420
  Transmission Date: 20101027
  Serious: Yes (Hospitalization, Other)
  Sender: FDA-Public Use
  Company Number: US-AMGEN-QUU407546

PATIENT
  Sex: Female

DRUGS (4)
  1. ENBREL [Suspect]
     Indication: RHEUMATOID ARTHRITIS
     Route: 058
     Dates: start: 20080101
  2. PREDNISONE [Concomitant]
     Route: 048
  3. VITAMIN TAB [Concomitant]
     Route: 048
  4. IRON [Concomitant]

REACTIONS (2)
  - FALL [None]
  - PREMATURE LABOUR [None]
